FAERS Safety Report 8924350 (Version 1)
Quarter: 2012Q4

REPORT INFORMATION
  Report Type: 
  Country: CH (occurrence: CH)
  Receive Date: 20121126
  Receipt Date: 20121126
  Transmission Date: 20130627
  Serious: Yes (Hospitalization)
  Sender: FDA-Public Use
  Company Number: CH-GLAXOSMITHKLINE-B0846780A

PATIENT
  Age: 81 Year
  Sex: Female
  Weight: 46 kg

DRUGS (8)
  1. VALTREX [Suspect]
     Indication: PRODUCT USED FOR UNKNOWN INDICATION
     Dosage: 1G per day
     Route: 048
  2. MARCOUMAR [Concomitant]
     Dosage: 3MG per day
     Route: 048
  3. CONCOR [Concomitant]
     Dosage: 1.25MG per day
     Route: 048
  4. TRITEC [Concomitant]
     Dosage: 10MG per day
     Route: 048
  5. LERCANIDIPINE HYDROCHLORIDE [Concomitant]
     Dosage: 10MG per day
     Route: 048
  6. CARDURA [Concomitant]
     Dosage: 4MG per day
     Route: 048
  7. KEPPRA [Concomitant]
     Dosage: 250MG per day
     Route: 048
  8. ZOLOFT [Concomitant]
     Dosage: 50MG per day
     Route: 048

REACTIONS (1)
  - Leukocytoclastic vasculitis [Recovered/Resolved]
